FAERS Safety Report 7047317-2 (Version None)
Quarter: 2010Q4

REPORT INFORMATION
  Report Type: 
  Country: None (occurrence: None)
  Receive Date: 20101015
  Receipt Date: 20101006
  Transmission Date: 20110411
  Serious: Yes (Hospitalization)
  Sender: FDA-Public Use
  Company Number: FR-ASTRAZENECA-2004CG01958

PATIENT
  Age: 57 Year
  Sex: Male

DRUGS (2)
  1. CRESTOR [Suspect]
     Indication: HYPERCHOLESTEROLAEMIA
     Route: 048
     Dates: start: 20031101
  2. CRESTOR [Suspect]
     Route: 048

REACTIONS (3)
  - CHOLELITHIASIS [None]
  - RENAL COLIC [None]
  - RETROGRADE AMNESIA [None]
